FAERS Safety Report 21452815 (Version 1)
Quarter: 2022Q4

REPORT INFORMATION
  Report Type: Spontaneous
  Country: US (occurrence: None)
  Receive Date: 20221012
  Receipt Date: 20221012
  Transmission Date: 20230113
  Serious: No
  Sender: FDA-Public Use
  Company Number: None

PATIENT
  Age: 75 Year
  Sex: Male

DRUGS (11)
  1. ERLEADA [Suspect]
     Active Substance: APALUTAMIDE
     Indication: Prostate cancer
     Dosage: FREQUENCY : DAILY;?
     Route: 048
     Dates: start: 202207
  2. AMLODIPINE [Concomitant]
     Active Substance: AMLODIPINE BESYLATE
  3. BRIMONIDINE [Concomitant]
     Active Substance: BRIMONIDINE TARTRATE
  4. COLCHICINE [Concomitant]
     Active Substance: COLCHICINE
  5. DORZOLAMIDE [Concomitant]
     Active Substance: DORZOLAMIDE
  6. ELIQUIS [Concomitant]
     Active Substance: APIXABAN
  7. PREDNISOLONE [Concomitant]
     Active Substance: PREDNISOLONE
  8. SIMVASTATIN [Concomitant]
     Active Substance: SIMVASTATIN
  9. SOTALOL [Concomitant]
     Active Substance: SOTALOL
  10. SPIRONOLACTONE [Concomitant]
     Active Substance: SPIRONOLACTONE
  11. VALSARTAN [Concomitant]
     Active Substance: VALSARTAN

REACTIONS (1)
  - Hospice care [None]
